FAERS Safety Report 8446847-6 (Version None)
Quarter: 2012Q2

REPORT INFORMATION
  Report Type: 
  Country: None (occurrence: None)
  Receive Date: 20120612
  Receipt Date: 20120612
  Transmission Date: 20120825
  Serious: No
  Sender: FDA-Public Use
  Company Number: None

PATIENT
  Sex: Female
  Weight: 54.8852 kg

DRUGS (2)
  1. KY SILK-E LUBRICANT, JOHNSON + JOHNSON [Suspect]
     Indication: VAGINAL INFECTION
     Dosage: AS NEEDED, APPROX. 1 X A WEEK, TOP
     Route: 061
     Dates: start: 20110901, end: 20120401
  2. KU TOUCH 2-IN-1 LUBRICANT, JOHNSON + JOHNSON [Suspect]
     Indication: VAGINAL INFECTION
     Dosage: AS NEEDED, APPROX. 1X A WEEK, TOP
     Route: 061
     Dates: start: 20120401, end: 20120411

REACTIONS (2)
  - HAEMATURIA [None]
  - ANGIOPATHY [None]
